FAERS Safety Report 9759160 (Version 2)
Quarter: 2013Q4

REPORT INFORMATION
  Report Type: Spontaneous
  Country: US (occurrence: US)
  Receive Date: 20131216
  Receipt Date: 20131223
  Transmission Date: 20140711
  Serious: Yes (Congenital Anomaly, Other)
  Sender: FDA-Public Use
  Company Number: US-ELI_LILLY_AND_COMPANY-US201312003266

PATIENT
  Sex: 0

DRUGS (1)
  1. PROZAC [Suspect]
     Indication: PRODUCT USED FOR UNKNOWN INDICATION
     Dosage: 1 DF, UNKNOWN
     Route: 064

REACTIONS (5)
  - Fallot^s tetralogy [Unknown]
  - Cleft lip [Unknown]
  - Cleft palate [Unknown]
  - Congenital scoliosis [Unknown]
  - Foetal exposure timing unspecified [Unknown]
